FAERS Safety Report 10053509 (Version 2)
Quarter: 2014Q2

REPORT INFORMATION
  Report Type: Spontaneous
  Country: US (occurrence: US)
  Receive Date: 20140402
  Receipt Date: 20140507
  Transmission Date: 20141212
  Serious: No
  Sender: FDA-Public Use
  Company Number: US-PFIZER INC-2014090710

PATIENT
  Age: 60 Year
  Sex: Male

DRUGS (11)
  1. CELEBREX [Suspect]
     Dosage: 200 MG, 1X/DAY
     Route: 048
  2. TRAMADOL HYDROCHLORIDE [Concomitant]
     Dosage: 100 MG, ONCE DAILY (2 (50 MG) TAB)
     Route: 048
  3. PERCOCET [Concomitant]
     Indication: PAIN
     Dosage: OXYCODONE HYDROCHLORIDE 5 MG, PARACETAMOL 325 MG 2 TABLETS AS NEEDED TID PRN
     Route: 048
  4. LYRICA [Concomitant]
     Dosage: 50 MG, 4X/DAY
     Route: 048
  5. BACLOFEN [Concomitant]
     Dosage: 40 MG, 4X/DAY (20MG, 2TABLETS QID)
  6. MIRAPEX [Concomitant]
     Dosage: 0.25 MG, 1-3 TABS HS PRN
     Route: 048
  7. OMEPRAZOLE [Concomitant]
     Dosage: 20 MG, 2X/DAY
     Route: 048
  8. CALCIUM + VIT D [Concomitant]
     Dosage: 600-200 MG-UNIT 1 TABLET WITH FOOD ONCE A DAY
     Route: 048
  9. VITAMIN D3 [Concomitant]
     Dosage: 1000 IU, 1X/DAY
     Route: 048
  10. CALCITONIN [Concomitant]
     Dosage: 200 UNIT/ACT 1 PUFF NASALLY, ONCE A DAY
     Route: 045
  11. VIAGRA [Concomitant]
     Dosage: 100 MG 1 TABLET, AS NEEDED ORALLY ONCE A DAY
     Route: 048

REACTIONS (2)
  - Pain in extremity [Unknown]
  - Musculoskeletal stiffness [Unknown]
